FAERS Safety Report 9007390 (Version 1)
Quarter: 2013Q1

REPORT INFORMATION
  Report Type: Spontaneous
  Country: AE (occurrence: AE)
  Receive Date: 20130110
  Receipt Date: 20130110
  Transmission Date: 20140127
  Serious: Yes (Hospitalization)
  Sender: FDA-Public Use
  Company Number: AE-MYLANLABS-2013S1000204

PATIENT
  Age: 15 Year
  Sex: Female

DRUGS (2)
  1. QUININE [Suspect]
     Indication: PLASMODIUM FALCIPARUM INFECTION
     Route: 041
  2. MEFLOQUINE [Concomitant]
     Indication: PLASMODIUM FALCIPARUM INFECTION
     Route: 065

REACTIONS (2)
  - Organising pneumonia [Recovering/Resolving]
  - Pneumothorax [Unknown]
